FAERS Safety Report 7815504-9 (Version None)
Quarter: 2011Q4

REPORT INFORMATION
  Report Type: 
  Country: None (occurrence: None)
  Receive Date: 20111014
  Receipt Date: 20111008
  Transmission Date: 20120403
  Serious: Yes (Hospitalization)
  Sender: FDA-Public Use
  Company Number: CN-ROCHE-1003088

PATIENT
  Age: 37 Year
  Sex: Female
  Weight: 68 kg

DRUGS (3)
  1. CYCLOPHOSPHAMIDE [Concomitant]
     Indication: B-CELL LYMPHOMA
     Route: 041
     Dates: start: 20110609
  2. MABTHERA [Suspect]
     Indication: B-CELL LYMPHOMA
     Route: 041
     Dates: start: 20110609
  3. FLUDARABINE PHOSPHATE [Concomitant]
     Indication: B-CELL LYMPHOMA
     Route: 041
     Dates: start: 20110609

REACTIONS (2)
  - TRAUMATIC LUNG INJURY [None]
  - PYREXIA [None]
